FAERS Safety Report 5689147-X (Version None)
Quarter: 2008Q1

REPORT INFORMATION
  Report Type: 
  Country: None (occurrence: None)
  Receive Date: 20080331
  Receipt Date: 20080327
  Transmission Date: 20080703
  Serious: Yes (Death)
  Sender: FDA-Public Use
  Company Number: AT-SANOFI-SYNTHELABO-F01200800494

PATIENT
  Sex: Female

DRUGS (6)
  1. FOSAMAX [Concomitant]
     Dosage: UNK
  2. CO-DILATREND [Concomitant]
     Dosage: UNK
  3. CAPECITABINE [Suspect]
     Dosage: 2000 MG/M2, TWICE A DAY FOR SEVEN DAYS
     Route: 048
     Dates: start: 20080201
  4. OXALIPLATIN [Suspect]
     Indication: COLORECTAL CANCER METASTATIC
     Dosage: 190.6 MG/M2 EVERY TWO WEEKS
     Route: 041
     Dates: start: 20080201, end: 20080201
  5. DIABETEX [Concomitant]
     Dosage: UNK
  6. BEVACIZUMAB [Suspect]
     Dosage: 335 MG 1 X PER 2 WEEK
     Route: 042
     Dates: start: 20080118, end: 20080118

REACTIONS (1)
  - MULTI-ORGAN FAILURE [None]
